FAERS Safety Report 8716283 (Version 3)
Quarter: 2013Q4

REPORT INFORMATION
  Report Type: Report from Study
  Country: US (occurrence: US)
  Receive Date: 20120810
  Receipt Date: 20131031
  Transmission Date: 20140711
  Serious: Yes (Hospitalization)
  Sender: FDA-Public Use
  Company Number: US-009507513-1208USA002399

PATIENT
  Age: 11 Year
  Sex: Female
  Weight: 37 kg

DRUGS (3)
  1. VORINOSTAT [Suspect]
     Indication: BRAIN STEM GLIOMA
     Dosage: 230 MG/M2, ON DAYS 1-5 WEEKLY, CYCLE = 6 WEEKS
     Route: 048
     Dates: start: 20120402
  2. VORINOSTAT [Suspect]
     Dosage: 230 MG/M2, QD, CYCLE = 28 DAYS (MAX = 12 CYCLE)
     Route: 048
     Dates: start: 20120608, end: 20120628
  3. VORINOSTAT [Suspect]
     Dosage: 230 MG/M2, QD, CYCLE = 28 DAYS (MAX = 12 CYCLE)
     Route: 048
     Dates: start: 20120630, end: 20120705

REACTIONS (1)
  - Abdominal pain [Recovered/Resolved]
